FAERS Safety Report 4557790-7 (Version None)
Quarter: 2005Q1

REPORT INFORMATION
  Report Type: 
  Country: None (occurrence: None)
  Receive Date: 20050121
  Receipt Date: 20050111
  Transmission Date: 20050727
  Serious: Yes (Death, Life-Threatening, Other)
  Sender: FDA-Public Use
  Company Number: GB-JNJFOC-20050104101

PATIENT
  Sex: Male
  Weight: 109 kg

DRUGS (11)
  1. REMICADE [Suspect]
     Indication: RHEUMATOID ARTHRITIS
     Route: 042
  2. METHOTREXATE [Concomitant]
  3. PREDNISOLONE [Concomitant]
  4. PIRITON [Concomitant]
  5. PAROXETINE HCL [Concomitant]
  6. QUININE [Concomitant]
  7. RISPERIDONE [Concomitant]
  8. FERROUS SULFATE TAB [Concomitant]
  9. ISOSORBIDE MONONITRATE [Concomitant]
  10. ASPIRIN [Concomitant]
  11. FOLIC ACID [Concomitant]

REACTIONS (2)
  - BRONCHOPNEUMONIA [None]
  - RESPIRATORY FAILURE [None]
